FAERS Safety Report 10569372 (Version 1)
Quarter: 2014Q4

REPORT INFORMATION
  Report Type: Spontaneous
  Country: DE (occurrence: DE)
  Receive Date: 20141106
  Receipt Date: 20141106
  Transmission Date: 20150529
  Serious: Yes (Congenital Anomaly, Other)
  Sender: FDA-Public Use
  Company Number: GXKR2014DE004092

PATIENT

DRUGS (5)
  1. THYRONAJOD [Concomitant]
     Active Substance: LEVOTHYROXINE SODIUM\POTASSIUM IODIDE
     Indication: HYPOTHYROIDISM
     Dosage: 50 [?G/D ]
     Route: 064
     Dates: start: 20130210, end: 20131008
  2. HAEMATE [Concomitant]
     Active Substance: ANTIHEMOPHILIC FACTOR HUMAN
     Indication: VON WILLEBRAND^S DISEASE
     Dosage: 6250 [I.E./D ]
     Route: 064
     Dates: start: 20130325, end: 20130403
  3. FOLSAN [Concomitant]
     Active Substance: FOLIC ACID
     Indication: PROPHYLAXIS OF NEURAL TUBE DEFECT
     Dosage: 5 [MG/D ]
     Route: 064
     Dates: start: 20130210, end: 20131008
  4. LAMOTRIGINE. [Suspect]
     Active Substance: LAMOTRIGINE
     Indication: EPILEPSY
     Dosage: 150 [MG/D ]/ GW 0-12 100MG/D, GW 12-DELIVERY 150MG/D
     Route: 064
     Dates: start: 20130210, end: 20131008
  5. NAUSEMA [Concomitant]
     Indication: VOMITING IN PREGNANCY
     Dosage: 30 [MG/D (3X10) ]
     Route: 064

REACTIONS (7)
  - Haemangioma congenital [Unknown]
  - Atrial septal defect [Unknown]
  - Coagulation disorder neonatal [Recovered/Resolved]
  - Maternal drugs affecting foetus [None]
  - Premature baby [None]
  - Cerebral haemorrhage neonatal [Unknown]
  - Thrombocytopenia neonatal [Recovered/Resolved]

NARRATIVE: CASE EVENT DATE: 20131008
